FAERS Safety Report 9732903 (Version 1)
Quarter: 2013Q4

REPORT INFORMATION
  Report Type: Spontaneous
  Country: JP (occurrence: JP)
  Receive Date: 20131205
  Receipt Date: 20131205
  Transmission Date: 20140711
  Serious: Yes (Hospitalization, Other)
  Sender: FDA-Public Use
  Company Number: JP-PFIZER INC-2013342820

PATIENT
  Age: 71 Year
  Sex: Male

DRUGS (2)
  1. MIGLITOL [Suspect]
     Indication: TYPE 2 DIABETES MELLITUS
     Dosage: 100 MG, DAILY
     Route: 048
     Dates: start: 201302
  2. GLIMEPIRIDE [Concomitant]
     Dosage: UNK

REACTIONS (2)
  - Portal venous gas [Recovered/Resolved]
  - Pneumatosis intestinalis [Recovered/Resolved]
